FAERS Safety Report 5491804-5 (Version None)
Quarter: 2007Q4

REPORT INFORMATION
  Report Type: 
  Country: None (occurrence: None)
  Receive Date: 20071022
  Receipt Date: 20071015
  Transmission Date: 20080405
  Serious: Yes (Disabling, Other)
  Sender: FDA-Public Use
  Company Number: JP-BRISTOL-MYERS SQUIBB COMPANY-13947072

PATIENT
  Age: 55 Year
  Sex: Male

DRUGS (6)
  1. ENDOXAN [Suspect]
     Indication: PERIPHERAL BLOOD STEM CELL APHERESIS
     Route: 041
     Dates: start: 20070821, end: 20070822
  2. UROMITEXAN [Concomitant]
     Dates: start: 20070821, end: 20070822
  3. KYTRIL [Concomitant]
     Dates: start: 20070821, end: 20070822
  4. AMLODIPINE [Concomitant]
     Dates: start: 20070816
  5. LANSOPRAZOLE [Concomitant]
     Dates: start: 20070818
  6. PRERAN [Concomitant]
     Dates: start: 20070823

REACTIONS (3)
  - GASTROENTERITIS [None]
  - PYREXIA [None]
  - RENAL FAILURE CHRONIC [None]
